FAERS Safety Report 21209840 (Version 1)
Quarter: 2022Q3

REPORT INFORMATION
  Report Type: Spontaneous
  Country: US (occurrence: None)
  Receive Date: 20220813
  Receipt Date: 20220813
  Transmission Date: 20221027
  Serious: No
  Sender: FDA-Public Use
  Company Number: 2022A284281

PATIENT

DRUGS (1)
  1. SEROQUEL [Suspect]
     Active Substance: QUETIAPINE FUMARATE
     Route: 048

REACTIONS (5)
  - Loss of consciousness [Unknown]
  - Feeling abnormal [Unknown]
  - Hypertension [Unknown]
  - Depression [Unknown]
  - Increased appetite [Unknown]
